FAERS Safety Report 19400994 (Version 2)
Quarter: 2021Q2

REPORT INFORMATION
  Report Type: Report from Study
  Country: CA (occurrence: CA)
  Receive Date: 20210611
  Receipt Date: 20210629
  Transmission Date: 20210717
  Serious: Yes (Hospitalization, Other)
  Sender: FDA-Public Use
  Company Number: CA-ASTRAZENECA-2021A478061

PATIENT
  Age: 13364 Day
  Sex: Male

DRUGS (6)
  1. VENTOLIN [Concomitant]
     Active Substance: ALBUTEROL SULFATE
     Dosage: AS REQUIRED
  2. MOMETASONE [Concomitant]
     Active Substance: MOMETASONE
  3. BREO ELLIPTA [Concomitant]
     Active Substance: FLUTICASONE FUROATE\VILANTEROL TRIFENATATE
  4. FASENRA [Suspect]
     Active Substance: BENRALIZUMAB
     Indication: ASTHMA
     Dosage: 30.0MG UNKNOWN
     Route: 058
     Dates: start: 20210527
  5. REACTINE [Concomitant]
  6. FLOVENT [Concomitant]
     Active Substance: FLUTICASONE PROPIONATE

REACTIONS (9)
  - Drug hypersensitivity [Recovered/Resolved]
  - Tremor [Recovered/Resolved]
  - Chills [Recovered/Resolved]
  - Injection site pain [Recovered/Resolved]
  - Vomiting [Recovered/Resolved]
  - Heart rate increased [Recovered/Resolved]
  - Bundle branch block left [Unknown]
  - Malaise [Recovering/Resolving]
  - Skin discolouration [Recovered/Resolved]

NARRATIVE: CASE EVENT DATE: 20210527
